FAERS Safety Report 10479732 (Version 1)
Quarter: 2014Q3

REPORT INFORMATION
  Report Type: Spontaneous
  Country: GR (occurrence: GR)
  Receive Date: 20140927
  Receipt Date: 20140927
  Transmission Date: 20150326
  Serious: Yes (Other)
  Sender: FDA-Public Use
  Company Number: PHHY2014GR121262

PATIENT
  Age: 76 Year
  Sex: Male

DRUGS (8)
  1. TICLOPIDINE [Suspect]
     Active Substance: TICLOPIDINE
     Dosage: 250 MG, BID
     Route: 048
  2. CLOPIDOGREL [Suspect]
     Active Substance: CLOPIDOGREL BISULFATE
     Dosage: 75 MG, QD
     Route: 048
  3. ASPIRIN. [Concomitant]
     Active Substance: ASPIRIN
     Dosage: 325 MG, QD
  4. CARVEDILOL. [Concomitant]
     Active Substance: CARVEDILOL
  5. ATORVASTATIN [Concomitant]
     Active Substance: ATORVASTATIN
  6. ASPIRIN. [Concomitant]
     Active Substance: ASPIRIN
     Dosage: 100 MG, QD
  7. CLOPIDOGREL [Suspect]
     Active Substance: CLOPIDOGREL BISULFATE
     Dosage: 600 MG, UNK
     Route: 048
  8. ENALAPRIL [Concomitant]
     Active Substance: ENALAPRIL

REACTIONS (12)
  - Oedema peripheral [Unknown]
  - Malaise [Unknown]
  - Skin oedema [Unknown]
  - Haemodynamic instability [Recovered/Resolved]
  - Pyrexia [Recovered/Resolved]
  - Hypotension [Unknown]
  - Dermatitis exfoliative [Unknown]
  - Rash pruritic [Recovering/Resolving]
  - Cross sensitivity reaction [Unknown]
  - Erythema [Unknown]
  - Exfoliative rash [Recovering/Resolving]
  - Chills [Unknown]
